FAERS Safety Report 5230806-0 (Version None)
Quarter: 2007Q1

REPORT INFORMATION
  Report Type: 
  Country: None (occurrence: None)
  Receive Date: 20070202
  Receipt Date: 20070122
  Transmission Date: 20070707
  Serious: Yes (Other)
  Sender: FDA-Public Use
  Company Number: GXKR2007NL01045

PATIENT
  Age: 69 Year
  Sex: Male
  Weight: 80 kg

DRUGS (3)
  1. AMIODARONE (NGX) (AMIODARONE) TABLET, 200MG [Suspect]
     Indication: ARRHYTHMIA
     Dosage: 200 MG, TID, ORAL
     Route: 048
     Dates: start: 20060126
  2. SELOKEEN ZOC (METOPROLOL SUCCINATE) [Concomitant]
  3. ACENOCOUMAROL [Concomitant]

REACTIONS (1)
  - OPTIC ISCHAEMIC NEUROPATHY [None]
